FAERS Safety Report 7285783-8 (Version None)
Quarter: 2011Q1

REPORT INFORMATION
  Report Type: 
  Country: None (occurrence: None)
  Receive Date: 20110210
  Receipt Date: 20110201
  Transmission Date: 20110831
  Serious: Yes (Other)
  Sender: FDA-Public Use
  Company Number: PHHY2011AU08396

PATIENT
  Age: 61 Year
  Sex: Female

DRUGS (3)
  1. RITUXIMAB [Suspect]
     Indication: LYMPHOMA
     Dosage: 04 CYCLES
  2. CHLORAMBUCIL [Suspect]
     Indication: LYMPHOMA
     Dosage: 04 CYCLES
  3. FLUDARA [Suspect]
     Indication: LYMPHOMA
     Dosage: 04 CYCLES

REACTIONS (2)
  - MYELODYSPLASTIC SYNDROME [None]
  - REFRACTORY ANAEMIA [None]
